FAERS Safety Report 16941522 (Version 2)
Quarter: 2019Q4

REPORT INFORMATION
  Report Type: Spontaneous
  Country: US (occurrence: US)
  Receive Date: 20191021
  Receipt Date: 20191129
  Transmission Date: 20200122
  Serious: No
  Sender: FDA-Public Use
  Company Number: US-ASTRAZENECA-2019SF44889

PATIENT
  Age: 19363 Day
  Sex: Male

DRUGS (3)
  1. ALBUTEROL. [Suspect]
     Active Substance: ALBUTEROL
     Route: 065
  2. PULMICORT FLEXHALER [Suspect]
     Active Substance: BUDESONIDE
     Indication: LUNG DISORDER
     Route: 055
     Dates: start: 20190902
  3. PULMICORT FLEXHALER [Suspect]
     Active Substance: BUDESONIDE
     Indication: LUNG DISORDER
     Dosage: BUDESONIDE
     Route: 055

REACTIONS (4)
  - Product dose omission [Unknown]
  - Tremor [Recovered/Resolved]
  - Intentional product misuse [Unknown]
  - Device issue [Unknown]

NARRATIVE: CASE EVENT DATE: 20190911
